FAERS Safety Report 4655184-7 (Version None)
Quarter: 2005Q2

REPORT INFORMATION
  Report Type: 
  Country: None (occurrence: None)
  Receive Date: 20050506
  Receipt Date: 20050428
  Transmission Date: 20051028
  Serious: Yes (Other)
  Sender: FDA-Public Use
  Company Number: US-GLAXOSMITHKLINE-A0556678A

PATIENT
  Sex: Male

DRUGS (3)
  1. PAXIL [Suspect]
     Indication: DEPRESSION
     Dosage: 60MG PER DAY
     Route: 048
  2. AMBIEN [Concomitant]
     Indication: SLEEP DISORDER
  3. BLOOD PRESSURE MEDICATION [Concomitant]

REACTIONS (2)
  - APHASIA [None]
  - PANIC ATTACK [None]
